FAERS Safety Report 9081595 (Version 1)
Quarter: 2013Q1

REPORT INFORMATION
  Report Type: Spontaneous
  Country: US (occurrence: US)
  Receive Date: 20130130
  Receipt Date: 20130130
  Transmission Date: 20140127
  Serious: No
  Sender: FDA-Public Use
  Company Number: US-ABBOTT-12P-163-0971092-00

PATIENT
  Age: 65 Year
  Sex: Female
  Weight: 73.55 kg

DRUGS (4)
  1. HUMIRA 40 MG/ 0.8 ML PRE-FILLED SYRINGE [Suspect]
     Indication: RHEUMATOID ARTHRITIS
     Route: 058
     Dates: start: 20120808
  2. METFORMIN [Concomitant]
     Indication: TYPE 2 DIABETES MELLITUS
  3. UNKNOWN MEDICATION [Concomitant]
     Indication: HYPERTENSION
  4. UNKNOWN MEDICATION [Concomitant]
     Indication: BLOOD CHOLESTEROL INCREASED

REACTIONS (3)
  - Fatigue [Not Recovered/Not Resolved]
  - Somnolence [Not Recovered/Not Resolved]
  - Palpitations [Recovered/Resolved]
